FAERS Safety Report 5732696-6 (Version None)
Quarter: 2008Q2

REPORT INFORMATION
  Report Type: 
  Country: None (occurrence: None)
  Receive Date: 20080509
  Receipt Date: 20080423
  Transmission Date: 20081010
  Serious: Yes (Other)
  Sender: FDA-Public Use
  Company Number: US-BAYER-200811610BCC

PATIENT
  Age: 79 Year
  Sex: Female
  Weight: 86 kg

DRUGS (5)
  1. ALEVE (CAPLET) [Suspect]
     Indication: ARTHRALGIA
     Dosage: TOTAL DAILY DOSE: 880 MG  UNIT DOSE: 220 MG
     Route: 048
  2. LASIX [Concomitant]
  3. MAVIK [Concomitant]
  4. LORAZEPAM [Concomitant]
  5. XANAX [Concomitant]

REACTIONS (2)
  - RENAL DISORDER [None]
  - RENAL FUNCTION TEST ABNORMAL [None]
